FAERS Safety Report 7599791 (Version 3)
Quarter: 2013Q4

REPORT INFORMATION
  Report Type: Spontaneous
  Country: JP (occurrence: JP)
  Receive Date: 20100921
  Receipt Date: 20131219
  Transmission Date: 20140711
  Serious: Yes (Other)
  Sender: FDA-Public Use
  Company Number: PHHY2010JP60464

PATIENT
  Age: 46 Year
  Sex: Male

DRUGS (4)
  1. CICLOSPORIN [Suspect]
     Indication: PSORIASIS
     Dosage: 200-300 MG, PER DAY
     Route: 048
     Dates: start: 1994, end: 200805
  2. METHOTREXATE [Suspect]
     Indication: PSORIATIC ARTHROPATHY
     Dosage: 6 MG, PER WEEK
     Route: 048
  3. METHOTREXATE [Suspect]
     Dosage: 4 MG, PER WEEK
     Route: 048
  4. MIZORIBINE [Suspect]

REACTIONS (8)
  - Psoriatic arthropathy [Recovered/Resolved]
  - Arthralgia [Recovered/Resolved]
  - Psoriasis [Recovered/Resolved]
  - Rash [Recovered/Resolved]
  - Joint swelling [Recovered/Resolved]
  - Musculoskeletal deformity [Recovered/Resolved]
  - Nephropathy [Unknown]
  - Renal failure chronic [Unknown]
